FAERS Safety Report 7960009-8 (Version None)
Quarter: 2011Q4

REPORT INFORMATION
  Report Type: 
  Country: None (occurrence: None)
  Receive Date: 20111206
  Receipt Date: 20111122
  Transmission Date: 20120403
  Serious: Yes (Hospitalization, Other)
  Sender: FDA-Public Use
  Company Number: PHHY2010JP07755

PATIENT
  Sex: Female

DRUGS (3)
  1. TIQUIZIUM BROMIDE [Suspect]
  2. CHEMOTHERAPEUTICS NOS [Concomitant]
  3. GLEEVEC [Suspect]
     Indication: GASTROINTESTINAL STROMAL TUMOUR
     Dosage: 400 MG, DAILY
     Route: 048
     Dates: start: 20080501, end: 20080501

REACTIONS (11)
  - NEOPLASM MALIGNANT [None]
  - HEPATITIS C VIRUS TEST POSITIVE [None]
  - HEPATIC FUNCTION ABNORMAL [None]
  - METASTASES TO LYMPH NODES [None]
  - RHABDOMYOLYSIS [None]
  - ASPARTATE AMINOTRANSFERASE INCREASED [None]
  - PLATELET COUNT DECREASED [None]
  - TUMOUR NECROSIS [None]
  - ALANINE AMINOTRANSFERASE INCREASED [None]
  - BLOOD CREATINE PHOSPHOKINASE INCREASED [None]
  - NEOPLASM PROGRESSION [None]
